FAERS Safety Report 24136179 (Version 2)
Quarter: 2024Q3

REPORT INFORMATION
  Report Type: Spontaneous
  Country: IN (occurrence: IN)
  Receive Date: 20240725
  Receipt Date: 20240729
  Transmission Date: 20241016
  Serious: Yes (Death)
  Sender: PFIZER
  Company Number: IN-PFIZER INC-PV202400095397

PATIENT
  Age: 78 Year
  Sex: Male

DRUGS (1)
  1. CRIZOTINIB [Suspect]
     Active Substance: CRIZOTINIB
     Dosage: 250 MG, BD
     Route: 048
     Dates: start: 202407

REACTIONS (2)
  - Toxicity to various agents [Fatal]
  - Dry throat [Unknown]

NARRATIVE: CASE EVENT DATE: 20240701
